FAERS Safety Report 18372852 (Version 1)
Quarter: 2020Q4

REPORT INFORMATION
  Report Type: Spontaneous
  Country: JP (occurrence: JP)
  Receive Date: 20201012
  Receipt Date: 20201012
  Transmission Date: 20210114
  Serious: Yes (Life-Threatening, Other)
  Sender: FDA-Public Use
  Company Number: JP-PFIZER INC-2020293895

PATIENT
  Age: 44 Year
  Sex: Male
  Weight: 54.2 kg

DRUGS (17)
  1. PREDNISOLONE. [Concomitant]
     Active Substance: PREDNISOLONE
     Dosage: UNK
  2. SOLIRIS [Concomitant]
     Active Substance: ECULIZUMAB
     Dosage: UNK
  3. TAKECAB [Interacting]
     Active Substance: VONOPRAZAN FUMARATE
     Dosage: UNK
  4. RITUXAN [Concomitant]
     Active Substance: RITUXIMAB
     Dosage: UNK, EVERY OTHER WEEK
  5. DOXAZOSIN [Concomitant]
     Active Substance: DOXAZOSIN MESYLATE
     Dosage: UNK
  6. VFEND [Suspect]
     Active Substance: VORICONAZOLE
     Indication: ASPERGILLUS INFECTION
     Dosage: UNK (LOADING DOSE)
     Route: 048
  7. VFEND [Interacting]
     Active Substance: VORICONAZOLE
     Dosage: 200 MG, 2X/DAY
     Route: 048
     Dates: start: 20200701
  8. ATOVAQUONE. [Concomitant]
     Active Substance: ATOVAQUONE
     Dosage: UNK
  9. ADALAT [Interacting]
     Active Substance: NIFEDIPINE
     Dosage: UNK
  10. MYSLEE [Interacting]
     Active Substance: ZOLPIDEM TARTRATE
     Dosage: UNK
  11. OLMETEC [Interacting]
     Active Substance: OLMESARTAN MEDOXOMIL
     Dosage: UNK
     Dates: end: 20200715
  12. NIFEDIPINE. [Concomitant]
     Active Substance: NIFEDIPINE
     Dosage: UNK
     Route: 041
  13. BAYASPIRIN [Concomitant]
     Active Substance: ASPIRIN
     Dosage: UNK
  14. SAMSCA [Interacting]
     Active Substance: TOLVAPTAN
     Dosage: UNK
  15. ENDOXAN [CYCLOPHOSPHAMIDE] [Concomitant]
     Active Substance: CYCLOPHOSPHAMIDE
     Dosage: UNK, ONCE EVERY 4 WEEKS
  16. CONIEL [Concomitant]
     Active Substance: BENIDIPINE HYDROCHLORIDE
     Dosage: UNK
  17. HALIZON [Concomitant]
     Active Substance: AMPHOTERICIN B
     Dosage: UNK

REACTIONS (7)
  - Pulmonary alveolar haemorrhage [Unknown]
  - Collagen disorder [Unknown]
  - Optic nerve infarction [Unknown]
  - Altered state of consciousness [Unknown]
  - Drug interaction [Unknown]
  - Renal impairment [Unknown]
  - Nystagmus [Unknown]

NARRATIVE: CASE EVENT DATE: 20200703
